FAERS Safety Report 9227204 (Version 1)
Quarter: 2013Q2

REPORT INFORMATION
  Report Type: Spontaneous
  Country: FR (occurrence: FR)
  Receive Date: 20130412
  Receipt Date: 20130412
  Transmission Date: 20140414
  Serious: Yes (Life-Threatening, Hospitalization)
  Sender: FDA-Public Use
  Company Number: FR-JNJFOC-20130403133

PATIENT
  Age: 53 Year
  Sex: Female

DRUGS (16)
  1. REMICADE [Suspect]
     Indication: ANKYLOSING SPONDYLITIS
     Route: 042
     Dates: end: 201112
  2. REMICADE [Suspect]
     Indication: PSORIATIC ARTHROPATHY
     Route: 042
     Dates: end: 201112
  3. METHOTREXATE [Suspect]
     Indication: PSORIATIC ARTHROPATHY
     Dosage: 14 YEARS
     Route: 065
     Dates: start: 20130114, end: 201301
  4. METHOTREXATE [Suspect]
     Indication: PSORIATIC ARTHROPATHY
     Route: 065
     Dates: start: 2006
  5. METHOTREXATE [Suspect]
     Indication: PSORIATIC ARTHROPATHY
     Route: 065
     Dates: start: 1999
  6. METHOTREXATE [Suspect]
     Indication: ANKYLOSING SPONDYLITIS
     Dosage: 14 YEARS
     Route: 065
     Dates: start: 20130114, end: 201301
  7. METHOTREXATE [Suspect]
     Indication: ANKYLOSING SPONDYLITIS
     Route: 065
     Dates: start: 2006
  8. METHOTREXATE [Suspect]
     Indication: ANKYLOSING SPONDYLITIS
     Route: 065
     Dates: start: 1999
  9. HUMIRA [Suspect]
     Indication: PSORIATIC ARTHROPATHY
     Route: 065
     Dates: start: 2006
  10. HUMIRA [Suspect]
     Indication: ANKYLOSING SPONDYLITIS
     Route: 065
     Dates: start: 2006
  11. ENBREL [Suspect]
     Indication: PSORIATIC ARTHROPATHY
     Route: 065
  12. ENBREL [Suspect]
     Indication: ANKYLOSING SPONDYLITIS
     Route: 065
  13. CIMZIA [Suspect]
     Indication: PSORIATIC ARTHROPATHY
     Route: 065
     Dates: start: 201112
  14. CIMZIA [Suspect]
     Indication: PSORIATIC ARTHROPATHY
     Route: 065
     Dates: end: 201212
  15. CIMZIA [Suspect]
     Indication: ANKYLOSING SPONDYLITIS
     Route: 065
     Dates: end: 201212
  16. CIMZIA [Suspect]
     Indication: ANKYLOSING SPONDYLITIS
     Route: 065
     Dates: start: 201112

REACTIONS (1)
  - Lung neoplasm malignant [Not Recovered/Not Resolved]
